FAERS Safety Report 13833777 (Version 11)
Quarter: 2019Q1

REPORT INFORMATION
  Report Type: Report from Study
  Country: US (occurrence: US)
  Receive Date: 20170804
  Receipt Date: 20190129
  Transmission Date: 20190417
  Serious: Yes (Hospitalization)
  Sender: FDA-Public Use
  Company Number: US-PFIZER INC-2017288747

PATIENT
  Age: 69 Year
  Sex: Male
  Weight: 93 kg

DRUGS (30)
  1. ASPIRIN /00002701/ [Concomitant]
     Active Substance: ASPIRIN
     Indication: PROPHYLAXIS
     Dosage: 325 MG, DAILY
     Route: 048
     Dates: start: 2009, end: 20161005
  2. FLUTICASONE. [Concomitant]
     Active Substance: FLUTICASONE
     Indication: RHINITIS
     Dosage: 50 UG/ML, DAILY
     Route: 045
     Dates: start: 2010, end: 20140929
  3. FLUTICASONE. [Concomitant]
     Active Substance: FLUTICASONE
     Dosage: 50 UG, 2X/DAY
     Route: 045
     Dates: start: 20140930
  4. METFORMIN [Concomitant]
     Active Substance: METFORMIN HYDROCHLORIDE
     Indication: DIABETES MELLITUS
     Dosage: 1000 MG, 2X/DAY
     Route: 048
     Dates: start: 20120412, end: 20160316
  5. PSYLLIUM /01328801/ [Concomitant]
     Active Substance: PLANTAGO SEED
     Indication: CONSTIPATION
     Dosage: 0.52 G, DAILY
     Route: 048
     Dates: start: 20100812
  6. KETOROLAC TROMETHAMINE. [Concomitant]
     Active Substance: KETOROLAC TROMETHAMINE
     Dosage: 1 GTT, DAILY
     Route: 047
     Dates: start: 20150212, end: 20150222
  7. KEFLEX [Concomitant]
     Active Substance: CEPHALEXIN
     Dosage: 500 MG, 3X/DAY
     Route: 048
     Dates: start: 20150710, end: 20150713
  8. OFLOXACIN. [Concomitant]
     Active Substance: OFLOXACIN
     Indication: POSTOPERATIVE CARE
     Dosage: EYE GHS, 1 UNITS, DAILY
     Route: 047
     Dates: start: 20150212, end: 20150216
  9. IMODIUM [Concomitant]
     Active Substance: LOPERAMIDE HYDROCHLORIDE
     Dosage: 2 TABS, AS NEEDED
     Route: 048
     Dates: start: 20150514
  10. GEMFIBROZIL. [Concomitant]
     Active Substance: GEMFIBROZIL
     Indication: HYPERLIPIDAEMIA
     Dosage: 600 MG, 2X/DAY
     Route: 048
     Dates: start: 20130517, end: 20170310
  11. METFORMIN [Concomitant]
     Active Substance: METFORMIN HYDROCHLORIDE
     Dosage: 500 MG, EVERY DAY
     Route: 048
     Dates: start: 20161005, end: 20170605
  12. SELENIUM [Concomitant]
     Active Substance: SELENIUM
     Indication: PROPHYLAXIS
     Dosage: 1 SQUIRT, PRN
     Route: 061
     Dates: start: 2012
  13. VITEYES AREDS 2 [Concomitant]
     Active Substance: MINERALS\VITAMINS
     Indication: SUPPLEMENTATION THERAPY
     Dosage: 1 TAB, EVERY DAY
     Route: 048
     Dates: start: 20160804
  14. KETOROLAC TROMETHAMINE. [Concomitant]
     Active Substance: KETOROLAC TROMETHAMINE
     Indication: POSTOPERATIVE CARE
     Dosage: 1 UNITS, DAILY
     Route: 047
     Dates: start: 20150318, end: 20150323
  15. ASPIRIN /00002701/ [Concomitant]
     Active Substance: ASPIRIN
     Dosage: 162 MG, DAILY
     Route: 048
     Dates: start: 20161005, end: 20170125
  16. METFORMIN [Concomitant]
     Active Substance: METFORMIN HYDROCHLORIDE
     Dosage: 500 MG, 2X/DAY
     Route: 048
     Dates: start: 20160317, end: 20161004
  17. NITROGLYCERIN SL [Concomitant]
     Active Substance: NITROGLYCERIN
     Indication: PROPHYLAXIS
     Dosage: 0.4 MG, AS NEEDED
     Route: 048
     Dates: start: 20170530
  18. OFLOXACIN. [Concomitant]
     Active Substance: OFLOXACIN
     Dosage: EYE GHS, 1 UNITS, DAILY
     Route: 047
     Dates: start: 20150318, end: 20150323
  19. PREDNISOLONE ACETATE. [Concomitant]
     Active Substance: PREDNISOLONE ACETATE
     Dosage: 1 UNITS, DAILY
     Route: 047
     Dates: start: 20150318, end: 20150417
  20. TESTOSTERONE. [Concomitant]
     Active Substance: TESTOSTERONE
     Indication: BLOOD TESTOSTERONE DECREASED
     Dosage: 200 MG, MONTHLY
     Route: 030
     Dates: start: 2015
  21. ZANTAC [Concomitant]
     Active Substance: RANITIDINE HYDROCHLORIDE
     Indication: DYSPEPSIA
     Dosage: 300 MG, DAILY
     Route: 048
     Dates: start: 20161005, end: 20170105
  22. PREDNISOLONE ACETATE. [Concomitant]
     Active Substance: PREDNISOLONE ACETATE
     Indication: POSTOPERATIVE CARE
     Dosage: 1 UNITS, DAILY
     Route: 047
     Dates: start: 20150212, end: 20150312
  23. OMEGA-3 FATTY ACIDS [Concomitant]
     Active Substance: OMEGA-3 FATTY ACIDS
     Indication: HYPERLIPIDAEMIA
     Dosage: 2000 MG, DAILY
     Route: 048
     Dates: start: 2010
  24. ZYRTEC [Concomitant]
     Active Substance: CETIRIZINE HYDROCHLORIDE
     Indication: RHINITIS
     Dosage: 10 MG, EVERY DAY
     Route: 048
     Dates: start: 20140923, end: 20141023
  25. BOSUTINIB [Suspect]
     Active Substance: BOSUTINIB
     Indication: CHRONIC MYELOID LEUKAEMIA
     Dosage: 300 MG, QD
     Route: 048
     Dates: start: 20140930, end: 20170627
  26. ASPIRIN /00002701/ [Concomitant]
     Active Substance: ASPIRIN
     Dosage: 243 MG, DAILY
     Route: 048
     Dates: start: 20170126, end: 20170825
  27. CLINDAMYCIN. [Concomitant]
     Active Substance: CLINDAMYCIN
     Dosage: 1 %, DAILY
     Route: 061
     Dates: start: 20150421, end: 20180109
  28. ZANTAC [Concomitant]
     Active Substance: RANITIDINE HYDROCHLORIDE
     Dosage: 150 MG, 2X/DAY
     Route: 048
     Dates: start: 20151021, end: 20151105
  29. VITAMIN D /00107901/ [Concomitant]
     Active Substance: ERGOCALCIFEROL
     Indication: PROPHYLAXIS
     Dosage: 1000 IU, EVERY DAY
     Route: 048
     Dates: start: 20170126
  30. PLETAL [Concomitant]
     Active Substance: CILOSTAZOL
     Indication: PERIPHERAL ARTERIAL OCCLUSIVE DISEASE
     Dosage: 100 MG, 2X/DAY
     Route: 048
     Dates: start: 20170530, end: 20180201

REACTIONS (1)
  - Coronary artery disease [Recovered/Resolved]

NARRATIVE: CASE EVENT DATE: 20170621
